FAERS Safety Report 5762163-5 (Version None)
Quarter: 2008Q2

REPORT INFORMATION
  Report Type: 
  Country: None (occurrence: None)
  Receive Date: 20080604
  Receipt Date: 20080505
  Transmission Date: 20081010
  Serious: Yes (Life-Threatening)
  Sender: FDA-Public Use
  Company Number: OMX-2008-00022

PATIENT
  Age: 49 Year
  Sex: Female

DRUGS (3)
  1. QUXIL (1ML) (FACTOR 1 (FIBRINOGEN)) [Suspect]
     Indication: KNEE ARTHROPLASTY
     Dosage: (1 ML) NEBULIZED ON BONE
     Dates: start: 20080428, end: 20080428
  2. MARCAINA (BUPIVACAINE HYDROCHLORIDE) (10 MG/ML) [Concomitant]
  3. DIPRIVAN [Concomitant]

REACTIONS (6)
  - ATRIAL THROMBOSIS [None]
  - CARDIAC ARREST [None]
  - COMA [None]
  - EMBOLISM [None]
  - HYPOTENSION [None]
  - HYPOVOLAEMIA [None]
